FAERS Safety Report 7097204-9 (Version None)
Quarter: 2010Q4

REPORT INFORMATION
  Report Type: 
  Country: None (occurrence: None)
  Receive Date: 20101111
  Receipt Date: 20100109
  Transmission Date: 20110411
  Serious: No
  Sender: FDA-Public Use
  Company Number: US-KINGPHARMUSA00001-K201000023

PATIENT
  Sex: Male
  Weight: 58.957 kg

DRUGS (2)
  1. EMBEDA [Suspect]
     Indication: BONE PAIN
     Dosage: 20 MG, SINGLE
     Route: 048
     Dates: start: 20091201, end: 20091201
  2. EMBEDA [Suspect]
     Dosage: 30 MG, SINGLE
     Route: 048
     Dates: start: 20100108, end: 20100108

REACTIONS (7)
  - CHEST DISCOMFORT [None]
  - DRUG INEFFECTIVE [None]
  - DYSPNOEA [None]
  - FEELING OF RELAXATION [None]
  - HYPOVENTILATION [None]
  - INSOMNIA [None]
  - PARAESTHESIA [None]
